FAERS Safety Report 19201236 (Version 1)
Quarter: 2021Q2

REPORT INFORMATION
  Report Type: Spontaneous
  Country: US (occurrence: US)
  Receive Date: 20210430
  Receipt Date: 20210430
  Transmission Date: 20210717
  Serious: No
  Sender: FDA-Public Use
  Company Number: US-MYLANLABS-2021M1023563

PATIENT
  Age: 56 Year
  Sex: Female
  Weight: 109 kg

DRUGS (1)
  1. SEMGLEE [Suspect]
     Active Substance: INSULIN GLARGINE
     Indication: TYPE 2 DIABETES MELLITUS
     Dosage: 100 UNITS/ML, BID (10 UNITS IN THE MORNING AND 15 UNITS AT NIGHT)
     Dates: start: 202101

REACTIONS (3)
  - Device issue [Unknown]
  - Injury associated with device [Unknown]
  - Inappropriate schedule of product administration [Unknown]

NARRATIVE: CASE EVENT DATE: 20210416
